FAERS Safety Report 13896524 (Version 5)
Quarter: 2018Q1

REPORT INFORMATION
  Report Type: Report from Study
  Country: None (occurrence: TR)
  Receive Date: 20170823
  Receipt Date: 20180218
  Transmission Date: 20180508
  Serious: Yes (Hospitalization)
  Sender: FDA-Public Use
  Company Number: TR-ABBVIE-17K-161-2079001-00

PATIENT
  Age: 61 Year
  Sex: Male
  Weight: 80 kg

DRUGS (10)
  1. PULCET [Concomitant]
     Active Substance: PANTOPRAZOLE SODIUM
     Indication: GASTRIC DISORDER
     Route: 048
     Dates: start: 2015
  2. PULCET [Concomitant]
     Active Substance: PANTOPRAZOLE SODIUM
     Indication: PROPHYLAXIS
  3. AVODART [Concomitant]
     Active Substance: DUTASTERIDE
     Indication: PROSTATIC DISORDER
     Route: 051
     Dates: start: 2014
  4. FOLBIOL [Concomitant]
     Active Substance: FOLIC ACID
     Indication: VITAMIN SUPPLEMENTATION
     Route: 048
     Dates: start: 2014
  5. LUSTRAL [Concomitant]
     Active Substance: SERTRALINE HYDROCHLORIDE
     Indication: SEDATIVE THERAPY
     Route: 048
     Dates: start: 2009
  6. V-PLEX B-12 [Concomitant]
     Indication: VITAMIN B12 DEFICIENCY
     Route: 030
  7. VESICARE [Concomitant]
     Active Substance: SOLIFENACIN SUCCINATE
     Indication: PROSTATIC DISORDER
     Route: 048
     Dates: start: 2014
  8. XATRAL XL [Concomitant]
     Active Substance: ALFUZOSIN HYDROCHLORIDE
     Indication: PROSTATIC DISORDER
     Route: 048
     Dates: start: 2014
  9. V-PLEX B-12 [Concomitant]
     Indication: VITAMIN SUPPLEMENTATION
  10. DUODOPA [Suspect]
     Active Substance: CARBIDOPA\LEVODOPA
     Indication: PARKINSON^S DISEASE
     Dosage: MORNING DOSE: 7.80 ML?CONTINUOUS DOSE: 3.90 ML?EXTRA DOSE: 2.00 ML
     Route: 050
     Dates: start: 20170818, end: 201709

REACTIONS (5)
  - Stoma site odour [Recovered/Resolved]
  - Stoma site discharge [Recovered/Resolved]
  - Stoma site infection [Recovered/Resolved]
  - Stoma site erythema [Recovered/Resolved]
  - C-reactive protein increased [Recovered/Resolved]

NARRATIVE: CASE EVENT DATE: 201708
